FAERS Safety Report 12580224 (Version 1)
Quarter: 2016Q3

REPORT INFORMATION
  Report Type: Spontaneous
  Country: IT (occurrence: IT)
  Receive Date: 20160721
  Receipt Date: 20160721
  Transmission Date: 20161109
  Serious: Yes (Hospitalization)
  Sender: FDA-Public Use
  Company Number: IT-BAYER-2016-142487

PATIENT
  Age: 36 Year
  Sex: Female

DRUGS (9)
  1. GLAZIDIM [Concomitant]
     Active Substance: CEFTAZIDIME
     Dosage: 6 G, QD
     Dates: start: 20160612, end: 20160622
  2. ALDACTONE [POTASSIUM CANRENOATE] [Concomitant]
     Active Substance: CANRENOATE POTASSIUM
     Dosage: UNK
     Dates: start: 20160614, end: 20160617
  3. POSACONAZOLE [Suspect]
     Active Substance: POSACONAZOLE
     Indication: INFECTION PROPHYLAXIS
     Dosage: 300 MG, QD
     Route: 048
     Dates: start: 20160607, end: 20160616
  4. AMIKACIN [Concomitant]
     Active Substance: AMIKACIN
     Dosage: 500 MG, QD
     Route: 042
     Dates: start: 20160613, end: 20160619
  5. CLARITIN [Suspect]
     Active Substance: LORATADINE
     Indication: RASH
     Dosage: 20 MG, QD
     Route: 048
     Dates: start: 20160609, end: 20160615
  6. UGUROL [Concomitant]
     Active Substance: TRANEXAMIC ACID
     Dosage: UNK
     Dates: start: 20160606, end: 20160613
  7. OMEPRAZOLE. [Concomitant]
     Active Substance: OMEPRAZOLE
  8. ACICLOVIR [Concomitant]
     Active Substance: ACYCLOVIR
     Dosage: 400 MG, QD
     Dates: start: 20160601
  9. GLIVEC [Suspect]
     Active Substance: IMATINIB MESYLATE
     Indication: ACUTE MYELOID LEUKAEMIA
     Dosage: 600 MG, QD
     Route: 048
     Dates: start: 20160602

REACTIONS (1)
  - Electrocardiogram QT prolonged [Recovered/Resolved]

NARRATIVE: CASE EVENT DATE: 20160615
